FAERS Safety Report 7679504-4 (Version None)
Quarter: 2011Q3

REPORT INFORMATION
  Report Type: 
  Country: None (occurrence: None)
  Receive Date: 20110812
  Receipt Date: 20110812
  Transmission Date: 20111222
  Serious: Yes (Other)
  Sender: FDA-Public Use
  Company Number: None

PATIENT
  Sex: Male
  Weight: 67 kg

DRUGS (2)
  1. BLEOMYCIN SULFATE [Concomitant]
     Dosage: 2 UNITS
     Route: 042
  2. FOSAPREPITANT [Suspect]
     Dosage: 150MG
     Route: 042

REACTIONS (2)
  - HYPERSENSITIVITY [None]
  - INFUSION RELATED REACTION [None]
